FAERS Safety Report 5200040-9 (Version None)
Quarter: 2007Q1

REPORT INFORMATION
  Report Type: 
  Country: None (occurrence: None)
  Receive Date: 20070105
  Receipt Date: 20061227
  Transmission Date: 20070707
  Serious: Yes (Death, Other)
  Sender: FDA-Public Use
  Company Number: US-ELI_LILLY_AND_COMPANY-US200612004424

PATIENT
  Age: 70 Year
  Sex: Female

DRUGS (9)
  1. XIGRIS [Suspect]
     Indication: SEPSIS
     Dosage: UNK, UNK
     Route: 042
     Dates: start: 20061226, end: 20061228
  2. MORPHINE [Concomitant]
  3. PEPCID [Concomitant]
  4. LIDOCAINE [Concomitant]
  5. ATIVAN [Concomitant]
  6. ROCEPHIN                                /GFR/ [Concomitant]
  7. INSULIN [Concomitant]
  8. ZYVOX [Concomitant]
  9. LEVOPHED [Concomitant]

REACTIONS (2)
  - INTERNATIONAL NORMALISED RATIO INCREASED [None]
  - MULTI-ORGAN FAILURE [None]
